FAERS Safety Report 10166394 (Version 5)
Quarter: 2016Q4

REPORT INFORMATION
  Report Type: Spontaneous
  Country: FR (occurrence: FR)
  Receive Date: 20140512
  Receipt Date: 20161126
  Transmission Date: 20170206
  Serious: Yes (Hospitalization)
  Sender: FDA-Public Use
  Company Number: FR-AMGEN-FRASP2014031118

PATIENT
  Age: 84 Year
  Sex: Male

DRUGS (15)
  1. SODIUM BICARBONATE. [Concomitant]
     Active Substance: SODIUM BICARBONATE
  2. CALCIUM [Concomitant]
     Active Substance: CALCIUM
     Dosage: 1 G, QD
  3. VITAMIN D [Concomitant]
     Active Substance: CHOLECALCIFEROL
     Dosage: 800 IU, QD
  4. IKOREL [Concomitant]
     Active Substance: NICORANDIL
  5. FUROSEMIDE. [Concomitant]
     Active Substance: FUROSEMIDE
  6. FUMARATE DISODIUM [Concomitant]
  7. PROLIA [Suspect]
     Active Substance: DENOSUMAB
     Indication: RENAL IMPAIRMENT
  8. FOSRENOL [Concomitant]
     Active Substance: LANTHANUM CARBONATE
  9. UVEDOSE [Concomitant]
     Active Substance: CHOLECALCIFEROL
  10. ASPEGIC [Concomitant]
     Active Substance: ASPIRIN DL-LYSINE
  11. TAHOR [Concomitant]
     Active Substance: ATORVASTATIN CALCIUM
  12. PROLIA [Suspect]
     Active Substance: DENOSUMAB
     Indication: OSTEITIS DEFORMANS
     Dosage: 60 MG, UNK
     Route: 058
     Dates: start: 20140325
  13. INEXIUM [Concomitant]
     Active Substance: ESOMEPRAZOLE
  14. PIASCLEDINE [Concomitant]
     Active Substance: AVOCADO OIL\SOYBEAN OIL
  15. BISOPROLOL [Concomitant]
     Active Substance: BISOPROLOL

REACTIONS (3)
  - Off label use [Unknown]
  - Bone pain [Recovering/Resolving]
  - Hypocalcaemia [Recovered/Resolved]

NARRATIVE: CASE EVENT DATE: 20140420
